FAERS Safety Report 10697708 (Version 1)
Quarter: 2015Q1

REPORT INFORMATION
  Report Type: Spontaneous
  Country: FR (occurrence: FR)
  Receive Date: 20150108
  Receipt Date: 20150108
  Transmission Date: 20150721
  Serious: Yes (Death, Hospitalization, Other)
  Sender: FDA-Public Use
  Company Number: FR-PFIZER INC-2015003957

PATIENT
  Age: 80 Year
  Sex: Male

DRUGS (10)
  1. EFFERALGAN [Concomitant]
     Active Substance: ACETAMINOPHEN
  2. LASILIX [Suspect]
     Active Substance: FUROSEMIDE
     Dosage: 375 MG, 1X/DAY
     Route: 048
     Dates: end: 201411
  3. PREVISCAN [Concomitant]
     Active Substance: FLUINDIONE
  4. EUTHYRAL [Concomitant]
     Active Substance: LEVOTHYROXINE SODIUM\LIOTHYRONINE SODIUM
  5. EZETROL [Suspect]
     Active Substance: EZETIMIBE
     Dosage: 10 MG, 1X/DAY
     Route: 048
     Dates: end: 201411
  6. NEURONTIN [Suspect]
     Active Substance: GABAPENTIN
     Dosage: 100 MG, 1X/DAY
     Route: 048
     Dates: end: 201411
  7. NOVONORM [Suspect]
     Active Substance: REPAGLINIDE
     Dosage: 0.5 MG, 3X/DAY
     Route: 048
     Dates: end: 201411
  8. FOSRENOL [Concomitant]
     Active Substance: LANTHANUM CARBONATE
  9. KARDEGIC [Concomitant]
     Active Substance: ASPIRIN LYSINE
  10. STILNOX [Concomitant]
     Active Substance: ZOLPIDEM TARTRATE

REACTIONS (5)
  - Respiratory failure [Unknown]
  - Septic shock [Unknown]
  - Pancreatitis [Fatal]
  - Pneumonia [Unknown]
  - Nervous system disorder [Unknown]

NARRATIVE: CASE EVENT DATE: 20141110
